FAERS Safety Report 18099897 (Version 6)
Quarter: 2020Q4

REPORT INFORMATION
  Report Type: Report from Study
  Country: US (occurrence: US)
  Receive Date: 20200731
  Receipt Date: 20201123
  Transmission Date: 20210113
  Serious: Yes (Other)
  Sender: FDA-Public Use
  Company Number: NVSC2020US214619

PATIENT
  Sex: Female

DRUGS (4)
  1. ENTRESTO [Suspect]
     Active Substance: SACUBITRIL\VALSARTAN
     Dosage: 24.26 MG, BID
     Route: 048
  2. ENTRESTO [Suspect]
     Active Substance: SACUBITRIL\VALSARTAN
     Dosage: 100 MG (49/51 MG), BID
     Route: 048
  3. ENTRESTO [Suspect]
     Active Substance: SACUBITRIL\VALSARTAN
     Indication: CARDIAC FAILURE
     Dosage: 50 MG, BID (24.26 MG)
     Route: 048
  4. ENTRESTO [Suspect]
     Active Substance: SACUBITRIL\VALSARTAN
     Dosage: UNK
     Route: 048

REACTIONS (11)
  - Nasopharyngitis [Unknown]
  - Heavy exposure to ultraviolet light [Unknown]
  - Dizziness [Unknown]
  - COVID-19 [Unknown]
  - Hyperhidrosis [Unknown]
  - Fatigue [Unknown]
  - Muscle spasms [Unknown]
  - Cough [Unknown]
  - Asthenia [Unknown]
  - Dyspnoea [Unknown]
  - Product dose omission issue [Unknown]
